FAERS Safety Report 12451340 (Version 1)
Quarter: 2016Q2

REPORT INFORMATION
  Report Type: Spontaneous
  Country: US (occurrence: None)
  Receive Date: 20160608
  Receipt Date: 20160608
  Transmission Date: 20160815
  Serious: Yes (Death, Hospitalization)
  Sender: FDA-Public Use
  Company Number: None

PATIENT
  Age: 46 Year
  Sex: Female
  Weight: 79.5 kg

DRUGS (2)
  1. SYSTEMIC CHEMOTHERAPY [Concomitant]
  2. HYDROCHLORIDE [Suspect]
     Active Substance: UNSPECIFIED INGREDIENT
     Dates: end: 20160531

REACTIONS (8)
  - Performance status decreased [None]
  - Hyponatraemia [None]
  - Pain [None]
  - Anaemia [None]
  - Pyrexia [None]
  - Breast cancer metastatic [None]
  - Malignant neoplasm progression [None]
  - Skin mass [None]

NARRATIVE: CASE EVENT DATE: 20160531
